FAERS Safety Report 8501028-2 (Version None)
Quarter: 2012Q3

REPORT INFORMATION
  Report Type: 
  Country: None (occurrence: None)
  Receive Date: 20120710
  Receipt Date: 20120626
  Transmission Date: 20120928
  Serious: Yes (Other)
  Sender: FDA-Public Use
  Company Number: GB-TEVA-343124ISR

PATIENT
  Age: 16 Year
  Sex: Male

DRUGS (1)
  1. OLANZAPINE [Suspect]
     Indication: PSYCHOTIC DISORDER
     Dosage: 15 MILLIGRAM;
     Route: 048
     Dates: start: 20120522

REACTIONS (5)
  - CHEST PAIN [None]
  - BLOOD CREATININE INCREASED [None]
  - MYOCARDITIS [None]
  - PERICARDITIS [None]
  - TROPONIN INCREASED [None]
